FAERS Safety Report 8157931-9 (Version None)
Quarter: 2012Q1

REPORT INFORMATION
  Report Type: 
  Country: None (occurrence: None)
  Receive Date: 20120222
  Receipt Date: 20120213
  Transmission Date: 20120608
  Serious: Yes (Other)
  Sender: FDA-Public Use
  Company Number: PHEH2011US012362

PATIENT
  Sex: Female

DRUGS (6)
  1. PROGESTERONE [Suspect]
  2. VIVELLE-DOT [Suspect]
     Dosage: 0.05 MG, QW2
     Route: 062
     Dates: start: 20120108
  3. ESTRADERM [Suspect]
     Dosage: 0.05 MG, UNK
     Route: 062
  4. ESTRADERM [Suspect]
     Dosage: 0.025 MG, UNK
     Route: 062
  5. COUMADIN [Concomitant]
  6. HYDROXYUREA [Concomitant]
     Indication: LEUKAEMIA

REACTIONS (20)
  - COGNITIVE DISORDER [None]
  - HYPERHIDROSIS [None]
  - DIARRHOEA [None]
  - DIVERTICULITIS [None]
  - GENERAL PHYSICAL HEALTH DETERIORATION [None]
  - MALAISE [None]
  - ABDOMINAL PAIN UPPER [None]
  - CEREBROVASCULAR ACCIDENT [None]
  - FREQUENT BOWEL MOVEMENTS [None]
  - MUSCULAR WEAKNESS [None]
  - LOSS OF CONSCIOUSNESS [None]
  - BURNING SENSATION [None]
  - HEART RATE DECREASED [None]
  - RETCHING [None]
  - VOMITING [None]
  - NAUSEA [None]
  - BLOOD PRESSURE FLUCTUATION [None]
  - TREMOR [None]
  - WRONG TECHNIQUE IN DRUG USAGE PROCESS [None]
  - DRUG INEFFECTIVE [None]
